FAERS Safety Report 8248632-7 (Version None)
Quarter: 2012Q1

REPORT INFORMATION
  Report Type: 
  Country: None (occurrence: None)
  Receive Date: 20120331
  Receipt Date: 20120319
  Transmission Date: 20120608
  Serious: Yes (Life-Threatening, Hospitalization, Disabling, Other)
  Sender: FDA-Public Use
  Company Number: US-MYLANLABS-2012S1006434

PATIENT
  Sex: Female
  Weight: 94.35 kg

DRUGS (32)
  1. AMIODARONE HCL [Concomitant]
     Dosage: X 2 DAYS (DATES UNKNOWN)
  2. ASPIRIN [Concomitant]
     Route: 048
  3. DILAUDID [Concomitant]
  4. MULTI-VITAMIN [Concomitant]
  5. FOLIC ACID [Concomitant]
  6. SIMVASTATIN [Concomitant]
     Route: 048
  7. ALDACTONE [Concomitant]
     Route: 048
  8. CARDIZEM CD [Concomitant]
     Route: 048
  9. COREG [Concomitant]
     Route: 048
  10. GLUCOPHAGE [Concomitant]
     Route: 048
  11. FERROUS SULFATE TAB [Concomitant]
  12. GLYBURIDE [Concomitant]
     Route: 048
  13. VIOXX [Concomitant]
     Route: 048
  14. LASIX [Concomitant]
     Route: 048
  15. PROCAINAMIDE [Concomitant]
     Dosage: 250MG TABLET
     Route: 048
  16. ZOCOR [Concomitant]
     Route: 048
  17. ZYRTEC [Concomitant]
     Route: 048
  18. AVANDIA [Concomitant]
     Route: 048
  19. IRON SULFATETHIAMIN COMPOUND TAB [Concomitant]
     Route: 048
  20. POTASSIUM CHLORIDE [Concomitant]
     Route: 048
  21. FOLIC ACID [Concomitant]
     Route: 048
  22. MAG-OX [Concomitant]
     Route: 048
  23. PREVACID [Concomitant]
     Route: 048
  24. SPIRONOLACTONE [Concomitant]
  25. DIGOXIN [Suspect]
     Route: 048
     Dates: start: 20011115, end: 20080523
  26. COUMADIN [Concomitant]
  27. IMDUR [Concomitant]
     Route: 048
  28. KLOR-CON [Concomitant]
     Route: 048
  29. VANCOMYCIN [Concomitant]
  30. ASCORBIC ACID [Concomitant]
     Route: 048
  31. ALLOPURINOL [Concomitant]
  32. LANTUS [Concomitant]

REACTIONS (68)
  - WOUND INFECTION [None]
  - GENERAL PHYSICAL HEALTH DETERIORATION [None]
  - UNRESPONSIVE TO STIMULI [None]
  - SINUS BRADYCARDIA [None]
  - ADVERSE DRUG REACTION [None]
  - LIVER FUNCTION TEST ABNORMAL [None]
  - BREAST HAEMATOMA [None]
  - ABDOMINAL DISTENSION [None]
  - GOUT [None]
  - BUNDLE BRANCH BLOCK [None]
  - ENDOTRACHEAL INTUBATION [None]
  - CORONARY ARTERY DISEASE [None]
  - TOXICITY TO VARIOUS AGENTS [None]
  - UTERINE CANCER [None]
  - EPISTAXIS [None]
  - FALL [None]
  - CONFUSIONAL STATE [None]
  - CEREBRAL HYPOPERFUSION [None]
  - CARDIAC VALVE DISEASE [None]
  - RENAL FAILURE ACUTE [None]
  - HEMIANOPIA HOMONYMOUS [None]
  - FATIGUE [None]
  - FLATULENCE [None]
  - NAUSEA [None]
  - HYPERHIDROSIS [None]
  - SWELLING [None]
  - HYPOTENSION [None]
  - PULMONARY HYPERTENSION [None]
  - ECCHYMOSIS [None]
  - ATRIAL FIBRILLATION [None]
  - SLEEP APNOEA SYNDROME [None]
  - HYPOKINESIA [None]
  - CARDIAC FAILURE CONGESTIVE [None]
  - TACHYCARDIA [None]
  - SHOCK [None]
  - PULMONARY OEDEMA [None]
  - VISUAL IMPAIRMENT [None]
  - VENOUS INSUFFICIENCY [None]
  - CELLULITIS [None]
  - RENAL FAILURE CHRONIC [None]
  - DEHYDRATION [None]
  - LETHARGY [None]
  - URINE ANALYSIS ABNORMAL [None]
  - MYOCARDIAL ISCHAEMIA [None]
  - VENTRICULAR EXTRASYSTOLES [None]
  - WALKING DISABILITY [None]
  - ARRHYTHMIA [None]
  - DIABETES MELLITUS [None]
  - BLOODY DISCHARGE [None]
  - ORTHOSTATIC HYPOTENSION [None]
  - ENCEPHALOPATHY [None]
  - SEPSIS [None]
  - ANAEMIA [None]
  - ANEURYSM [None]
  - PROTEIN TOTAL INCREASED [None]
  - DRUG ADMINISTRATION ERROR [None]
  - DEPRESSED LEVEL OF CONSCIOUSNESS [None]
  - LABORATORY TEST ABNORMAL [None]
  - CEREBROVASCULAR ACCIDENT [None]
  - MECHANICAL VENTILATION [None]
  - CONSTIPATION [None]
  - ASTHENIA [None]
  - PALPITATIONS [None]
  - CORONARY ARTERY INSUFFICIENCY [None]
  - TREMOR [None]
  - ELECTROCARDIOGRAM ABNORMAL [None]
  - ECHOCARDIOGRAM ABNORMAL [None]
  - VENTRICULAR HYPERTROPHY [None]
